FAERS Safety Report 25659052 (Version 3)
Quarter: 2025Q4

REPORT INFORMATION
  Report Type: Spontaneous
  Country: EU (occurrence: EU)
  Receive Date: 20250808
  Receipt Date: 20251201
  Transmission Date: 20260118
  Serious: Yes (Other)
  Sender: ORGANON
  Company Number: EU-SANDOZ-SDZ2025DE042702

PATIENT
  Age: 40 Year

DRUGS (5)
  1. LOSARTAN [Suspect]
     Active Substance: LOSARTAN
     Indication: Blood pressure increased
     Dosage: 100 MG (FILM-COATED TABLET)
     Route: 065
  2. LOSARTAN [Suspect]
     Active Substance: LOSARTAN
     Dosage: 100 MG, BID (FILM-COATED TABLET)
     Route: 065
     Dates: start: 2024
  3. AMLODIPINE [Suspect]
     Active Substance: AMLODIPINE BESYLATE
     Indication: Hypertension
     Dosage: 10 MG TABLETS FOR TWO YEARS
     Route: 065
  4. AMLODIPINE [Suspect]
     Active Substance: AMLODIPINE BESYLATE
     Indication: Angina pectoris
     Dosage: 10 MG
     Route: 065
  5. RAMIPRIL [Suspect]
     Active Substance: RAMIPRIL
     Indication: Angina pectoris
     Dosage: 10 MG
     Route: 065

REACTIONS (28)
  - Hypertension [Unknown]
  - Angina pectoris [Unknown]
  - Renal pain [Unknown]
  - Nocturnal dyspnoea [Unknown]
  - Cardiac disorder [Unknown]
  - Renal disorder [Unknown]
  - Lung disorder [Unknown]
  - Pain [Unknown]
  - Pruritus [Unknown]
  - Abdominal pain upper [Unknown]
  - Dyspnoea [Unknown]
  - Pigmentation disorder [Unknown]
  - Neuralgia [Unknown]
  - Headache [Unknown]
  - Pain of skin [Unknown]
  - Road traffic accident [Unknown]
  - Chest discomfort [Unknown]
  - Cough [Unknown]
  - Chest pain [Unknown]
  - Decreased appetite [Unknown]
  - Pulmonary pain [Unknown]
  - Vomiting [Unknown]
  - Drug ineffective [Unknown]
  - Illness [Unknown]
  - Arthralgia [Unknown]
  - Palpitations [Unknown]
  - Pain in extremity [Unknown]
  - Bladder pain [Unknown]
